FAERS Safety Report 9011312 (Version 1)
Quarter: 2013Q1

REPORT INFORMATION
  Report Type: Other
  Country: GB (occurrence: GB)
  Receive Date: 20130109
  Receipt Date: 20130109
  Transmission Date: 20140127
  Serious: Yes (Other)
  Sender: FDA-Public Use
  Company Number: GB-WATSON-2012-23400

PATIENT
  Age: 18 Year
  Sex: Female

DRUGS (4)
  1. OMEPRAZOLE (UNKNOWN) [Suspect]
     Indication: GASTRITIS
     Dosage: 20MG
     Route: 048
     Dates: start: 20121116, end: 20121128
  2. FLUOXETINE [Concomitant]
     Indication: PRODUCT USED FOR UNKNOWN INDICATION
     Dosage: 20MG
     Route: 065
  3. CYCLIZINE [Concomitant]
     Indication: PRODUCT USED FOR UNKNOWN INDICATION
     Dosage: 50 MG, TID
     Route: 065
  4. TRAMADOL [Concomitant]
     Indication: PRODUCT USED FOR UNKNOWN INDICATION
     Dosage: 50 MG, QID
     Route: 065

REACTIONS (1)
  - Aphasia [Recovered/Resolved]
